FAERS Safety Report 22820648 (Version 3)
Quarter: 2023Q4

REPORT INFORMATION
  Report Type: Spontaneous
  Country: IN (occurrence: IN)
  Receive Date: 20230814
  Receipt Date: 20231018
  Transmission Date: 20240110
  Serious: Yes (Hospitalization)
  Sender: FDA-Public Use
  Company Number: IN-PFIZER INC-PV202300120302

PATIENT
  Age: 65 Year
  Sex: Female

DRUGS (8)
  1. PALBOCICLIB [Suspect]
     Active Substance: PALBOCICLIB
     Dosage: 125 MG 1X/DAY (21 DAYS, THEN 1 WEEK OFF)
     Route: 048
  2. THYROX [Concomitant]
     Dosage: 75 UG, 1X/DAY
  3. ZORYL M [Concomitant]
     Dosage: 2 BD
  4. ZITEN [TENELIGLIPTIN HYDROBROMIDE] [Concomitant]
     Dosage: 20 MG, 1X/DAY
  5. TOZAAR H [Concomitant]
     Dosage: UNK, 1X/DAY
  6. VILPOWER [Concomitant]
     Dosage: 50 OD
  7. ROSEDAY A [Concomitant]
     Dosage: ( 75 / 10 )
  8. XGEVA [Concomitant]
     Active Substance: DENOSUMAB

REACTIONS (9)
  - Vitamin D increased [Unknown]
  - Blood glucose decreased [Unknown]
  - Blood creatine increased [Unknown]
  - White blood cell count decreased [Unknown]
  - Neutrophil count decreased [Unknown]
  - Blood triglycerides increased [Unknown]
  - Blood thyroid stimulating hormone increased [Unknown]
  - Haemoglobin decreased [Unknown]
  - Platelet count decreased [Unknown]

NARRATIVE: CASE EVENT DATE: 20230101
